FAERS Safety Report 21868310 (Version 2)
Quarter: 2023Q1

REPORT INFORMATION
  Report Type: Spontaneous
  Country: US (occurrence: US)
  Receive Date: 20230116
  Receipt Date: 20230118
  Transmission Date: 20230418
  Serious: Yes (Other)
  Sender: FDA-Public Use
  Company Number: US-SANOFI-01441009

PATIENT
  Age: 55 Year
  Sex: Female

DRUGS (1)
  1. SOLIQUA 100/33 [Suspect]
     Active Substance: INSULIN GLARGINE\LIXISENATIDE
     Indication: Type 2 diabetes mellitus
     Dosage: 15-30 IU , QD WITH BREAKFAST
     Dates: start: 2018

REACTIONS (2)
  - Cerebrovascular accident [Unknown]
  - Product dispensing error [Unknown]

NARRATIVE: CASE EVENT DATE: 20220901
